FAERS Safety Report 9386139 (Version 1)
Quarter: 2013Q3

REPORT INFORMATION
  Report Type: Spontaneous
  Country: US (occurrence: US)
  Receive Date: 20130707
  Receipt Date: 20130707
  Transmission Date: 20140515
  Serious: No
  Sender: FDA-Public Use
  Company Number: US-ALLERGAN-1305832US

PATIENT
  Sex: Male

DRUGS (1)
  1. LUMIGAN? 0.01% [Suspect]
     Indication: PRODUCT USED FOR UNKNOWN INDICATION
     Dosage: UNK
     Dates: start: 20130305, end: 20130412

REACTIONS (3)
  - Reaction to preservatives [Unknown]
  - Dry eye [Unknown]
  - Ocular hyperaemia [Unknown]
